FAERS Safety Report 4599472-1 (Version None)
Quarter: 2005Q1

REPORT INFORMATION
  Report Type: 
  Country: None (occurrence: None)
  Receive Date: 20050307
  Receipt Date: 20050125
  Transmission Date: 20050727
  Serious: Yes (Other)
  Sender: FDA-Public Use
  Company Number: DE-SOLVAY-00305000282

PATIENT
  Age: 687 Month
  Sex: Male
  Weight: 99 kg

DRUGS (1)
  1. ANDROTOP GEL [Suspect]
     Indication: ILL-DEFINED DISORDER
     Dosage: DAILY DOSE:  UNKNOWN
     Route: 062
     Dates: start: 20041001, end: 20050201

REACTIONS (2)
  - ANGINA PECTORIS [None]
  - TACHYCARDIA [None]
